FAERS Safety Report 24657272 (Version 2)
Quarter: 2025Q1

REPORT INFORMATION
  Report Type: Spontaneous
  Country: US (occurrence: US)
  Receive Date: 20241125
  Receipt Date: 20250227
  Transmission Date: 20250409
  Serious: No
  Sender: GLAUKOS
  Company Number: US-GLK-002394

PATIENT
  Sex: Male

DRUGS (3)
  1. TRAVOPROST [Suspect]
     Active Substance: TRAVOPROST
     Dates: start: 20241023, end: 20241023
  2. VYZULTA [Suspect]
     Active Substance: LATANOPROSTENE BUNOD
  3. PREDNISOLONE [Suspect]
     Active Substance: PREDNISOLONE

REACTIONS (3)
  - Intraocular pressure increased [Unknown]
  - Device dislocation [Unknown]
  - Medical device removal [Unknown]

NARRATIVE: CASE EVENT DATE: 20241030
